FAERS Safety Report 20454482 (Version 5)
Quarter: 2022Q3

REPORT INFORMATION
  Report Type: Spontaneous
  Country: AU (occurrence: AU)
  Receive Date: 20220210
  Receipt Date: 20220725
  Transmission Date: 20221026
  Serious: Yes (Hospitalization, Other)
  Sender: FDA-Public Use
  Company Number: AU-MYLANLABS-2021M1052062

PATIENT
  Age: 45 Year
  Sex: Male

DRUGS (2)
  1. CLOZARIL [Suspect]
     Active Substance: CLOZAPINE
     Indication: Schizophrenia
     Dosage: 375 MILLIGRAM
     Route: 048
     Dates: start: 20010806
  2. CLOZARIL [Suspect]
     Active Substance: CLOZAPINE
     Dosage: 150 MILLIGRAM
     Route: 048
     Dates: start: 20220630

REACTIONS (5)
  - COVID-19 [Unknown]
  - Cytopenia [Unknown]
  - White blood cell count decreased [Recovering/Resolving]
  - Neutrophil count decreased [Not Recovered/Not Resolved]
  - Hypersplenism [Unknown]

NARRATIVE: CASE EVENT DATE: 20210812
